FAERS Safety Report 5245636-3 (Version None)
Quarter: 2007Q1

REPORT INFORMATION
  Report Type: 
  Country: None (occurrence: None)
  Receive Date: 20070223
  Receipt Date: 20070221
  Transmission Date: 20070707
  Serious: Yes (Death)
  Sender: FDA-Public Use
  Company Number: JP-ROXANE LABORATORIES, INC-2007-BP-02528RO

PATIENT
  Age: 67 Year
  Sex: Female

DRUGS (2)
  1. CYCLOPHOSPHAMIDE [Suspect]
     Indication: DERMATOMYOSITIS
     Dosage: 50 MG/DAY
  2. PREDNISOLONE [Suspect]
     Indication: DERMATOMYOSITIS

REACTIONS (4)
  - CONDITION AGGRAVATED [None]
  - CYTOMEGALOVIRUS INFECTION [None]
  - DYSPNOEA [None]
  - INTERSTITIAL LUNG DISEASE [None]
